FAERS Safety Report 7692351-2 (Version None)
Quarter: 2011Q3

REPORT INFORMATION
  Report Type: 
  Country: None (occurrence: None)
  Receive Date: 20110818
  Receipt Date: 20110810
  Transmission Date: 20111222
  Serious: Yes (Other)
  Sender: FDA-Public Use
  Company Number: US-US-EMD SERONO, INC.-7074192

PATIENT
  Sex: Female

DRUGS (4)
  1. PROZAC [Concomitant]
  2. HYDROCODONE [Concomitant]
     Indication: PAIN
  3. XANAX [Concomitant]
     Indication: ANXIETY
  4. REBIF [Suspect]
     Indication: MULTIPLE SCLEROSIS
     Route: 058
     Dates: start: 20100714

REACTIONS (4)
  - DYSSTASIA [None]
  - DIZZINESS [None]
  - LOSS OF CONSCIOUSNESS [None]
  - INJECTION SITE ERYTHEMA [None]
